FAERS Safety Report 8140525-9 (Version None)
Quarter: 2012Q1

REPORT INFORMATION
  Report Type: 
  Country: None (occurrence: None)
  Receive Date: 20120214
  Receipt Date: 20120214
  Transmission Date: 20120608
  Serious: No
  Sender: FDA-Public Use
  Company Number: None

PATIENT
  Sex: Female
  Weight: 105.4 kg

DRUGS (1)
  1. SUNITINIB MALATE [Suspect]
     Dosage: 1400 MG
     Dates: end: 20111122

REACTIONS (2)
  - HYPERTRIGLYCERIDAEMIA [None]
  - PRURITUS [None]
